FAERS Safety Report 21321212 (Version 1)
Quarter: 2022Q3

REPORT INFORMATION
  Report Type: Spontaneous
  Country: US (occurrence: None)
  Receive Date: 20220912
  Receipt Date: 20220912
  Transmission Date: 20221026
  Serious: Yes (Hospitalization, Other)
  Sender: FDA-Public Use
  Company Number: US-MLMSERVICE-20220823-3750745-1

PATIENT
  Sex: Male

DRUGS (4)
  1. FLECAINIDE [Suspect]
     Active Substance: FLECAINIDE
     Indication: Supraventricular tachycardia
     Route: 065
  2. FLECAINIDE [Suspect]
     Active Substance: FLECAINIDE
     Dosage: TITRATED UP
  3. EVEROLIMUS [Concomitant]
     Active Substance: EVEROLIMUS
     Indication: Rhabdomyoma
     Route: 065
  4. ADENOSINE [Concomitant]
     Active Substance: ADENOSINE
     Indication: Supraventricular tachycardia
     Dosage: UNKNOWN
     Route: 065

REACTIONS (2)
  - Supraventricular extrasystoles [Unknown]
  - Electrocardiogram QRS complex prolonged [Unknown]
